FAERS Safety Report 7047104-5 (Version None)
Quarter: 2010Q4

REPORT INFORMATION
  Report Type: 
  Country: None (occurrence: None)
  Receive Date: 20101012
  Receipt Date: 20101001
  Transmission Date: 20110411
  Serious: Yes (Other)
  Sender: FDA-Public Use
  Company Number: 2010US000172

PATIENT
  Age: 51 Year
  Sex: Female

DRUGS (19)
  1. AMBISOME [Suspect]
     Indication: BRONCHOPULMONARY ASPERGILLOSIS
     Dosage: 150 MG, UID/QD IV NOS, 100 MG, UID/QD, IV NOS
     Route: 042
     Dates: start: 20091210, end: 20100106
  2. AMBISOME [Suspect]
     Indication: BRONCHOPULMONARY ASPERGILLOSIS
     Dosage: 150 MG, UID/QD IV NOS, 100 MG, UID/QD, IV NOS
     Route: 042
     Dates: start: 20091126
  3. MYCAMINE [Concomitant]
  4. RED BLOOD CELLS, CONCENTRATED (RED BLOOD CELLS CONCENTRATED) [Concomitant]
  5. HUMAN SERUM ALBUMIN (ALBUMIN) [Concomitant]
  6. CEFTAZIDIME [Concomitant]
  7. ZOSYN [Concomitant]
  8. VANCOMYCIN HCL (VANCOMYCIN HYDROCHLORIDE) [Concomitant]
  9. METHYLPREDNISOLONE [Concomitant]
  10. MEROPENEM [Concomitant]
  11. CIPROFLOXACIN [Concomitant]
  12. ELASPOL (SIVELESTAT SODIUM) [Concomitant]
  13. MIDAZOLAM HCL [Concomitant]
  14. FENTANYL CITRATE [Concomitant]
  15. FUROSEMIDE [Concomitant]
  16. LANSOPRAZOLE [Concomitant]
  17. PREDONINE (PREDNISOLONE SODIUM SUCCINATE) [Concomitant]
  18. FUNGUARD (MICAFUNGIN) [Concomitant]
  19. GABEXATE MESILATE (GABEXATE MESILATE) [Concomitant]

REACTIONS (1)
  - PANCREATITIS ACUTE [None]
